FAERS Safety Report 8150739 (Version 2)
Quarter: 2013Q1

REPORT INFORMATION
  Report Type: Spontaneous
  Country: US (occurrence: US)
  Receive Date: 20110922
  Receipt Date: 20130218
  Transmission Date: 20140127
  Serious: Yes (Other)
  Sender: FDA-Public Use
  Company Number: US-ASTRAZENECA-2011SE12672

PATIENT
  Sex: Male

DRUGS (10)
  1. SEROQUEL [Suspect]
     Dosage: 25 TO 100 MG
     Route: 048
     Dates: start: 1997
  2. SEROQUEL [Suspect]
     Route: 048
     Dates: start: 20090203
  3. HYDROCODONE [Concomitant]
     Dosage: PRN
     Dates: start: 200902
  4. IBUPROPHEN [Concomitant]
     Dosage: PRN
     Dates: start: 200902
  5. BENZTROPINE [Concomitant]
     Dates: start: 200902
  6. VERAPAMIL [Concomitant]
     Dates: start: 200902
  7. SIMVASTATIN [Concomitant]
     Dates: start: 200902
  8. LISINOPRIL [Concomitant]
     Dates: start: 200902
  9. LEVOTHYROXINE [Concomitant]
     Dates: start: 200902
  10. ZOLOFT [Concomitant]
     Dosage: 100 TO 200 MG
     Dates: start: 19970110

REACTIONS (3)
  - Pancreatitis [Unknown]
  - Diabetic coma [Unknown]
  - Type 2 diabetes mellitus [Unknown]
